FAERS Safety Report 10721087 (Version 4)
Quarter: 2015Q2

REPORT INFORMATION
  Report Type: Spontaneous
  Country: US (occurrence: US)
  Receive Date: 20150119
  Receipt Date: 20150605
  Transmission Date: 20150821
  Serious: Yes (Hospitalization)
  Sender: FDA-Public Use
  Company Number: US-UCBSA-2015001030

PATIENT
  Age: 67 Year
  Sex: Female
  Weight: 48 kg

DRUGS (15)
  1. CARBIDOPA/LEVODOPA [Concomitant]
     Active Substance: CARBIDOPA\LEVODOPA
     Indication: PRODUCT USED FOR UNKNOWN INDICATION
     Dosage: 25-100, 4X/DAY (QID)
  2. CARBIDOPA/LEVODOPA [Concomitant]
     Active Substance: CARBIDOPA\LEVODOPA
     Dosage: UNK
     Dates: start: 201503
  3. NEUPRO [Suspect]
     Active Substance: ROTIGOTINE
     Dosage: 4 MG, ONCE DAILY (QD)
     Route: 062
     Dates: start: 201408, end: 201411
  4. SYNTHROID [Concomitant]
     Active Substance: LEVOTHYROXINE SODIUM
     Indication: HYPOTHYROIDISM
     Dosage: UNK
     Dates: start: 2008
  5. NEUPRO [Suspect]
     Active Substance: ROTIGOTINE
     Dosage: 4 MG, UNK
     Route: 062
     Dates: start: 2013, end: 2013
  6. NEUPRO [Suspect]
     Active Substance: ROTIGOTINE
     Dosage: 4 MG
     Dates: start: 20150111, end: 201501
  7. CITALOPRAM [Concomitant]
     Active Substance: CITALOPRAM HYDROBROMIDE
     Indication: DEPRESSION
     Dosage: 10 MG, ONCE DAILY (QD)
  8. NEUPRO [Suspect]
     Active Substance: ROTIGOTINE
     Dosage: 6 MG, UNK
     Route: 062
     Dates: start: 2013, end: 2013
  9. NEUPRO [Suspect]
     Active Substance: ROTIGOTINE
     Dosage: 2 MG
     Dates: start: 201501, end: 201501
  10. NEUPRO [Suspect]
     Active Substance: ROTIGOTINE
     Dosage: 6MG
     Dates: start: 201501, end: 20150120
  11. NEUPRO [Suspect]
     Active Substance: ROTIGOTINE
     Dosage: UNK
     Dates: start: 20150120, end: 20150120
  12. NEUPRO [Suspect]
     Active Substance: ROTIGOTINE
     Indication: MULTIPLE SYSTEM ATROPHY
     Dosage: 1 MG, UNK
     Route: 062
     Dates: start: 201306, end: 2013
  13. NEUPRO [Suspect]
     Active Substance: ROTIGOTINE
     Indication: PARKINSONISM
     Dosage: 4 MG, ONCE DAILY (QD)
     Route: 062
     Dates: start: 20130113, end: 2013
  14. NEUPRO [Suspect]
     Active Substance: ROTIGOTINE
     Dosage: 4 MG, ONCE DAILY (QD)
     Route: 062
     Dates: start: 201307, end: 201408
  15. NEUPRO [Suspect]
     Active Substance: ROTIGOTINE
     Dosage: 2 MG, UNK
     Route: 062
     Dates: start: 2013, end: 2013

REACTIONS (10)
  - Multiple system atrophy [Not Recovered/Not Resolved]
  - Fall [Not Recovered/Not Resolved]
  - Asthenia [Recovered/Resolved]
  - Anxiety [Not Recovered/Not Resolved]
  - Balance disorder [Recovered/Resolved]
  - Salmonellosis [Recovered/Resolved]
  - Femur fracture [Recovered/Resolved]
  - Drug ineffective [Unknown]
  - Procedural pain [Recovered/Resolved]
  - Hypotension [Recovered/Resolved]

NARRATIVE: CASE EVENT DATE: 201408
